FAERS Safety Report 7344612-4 (Version None)
Quarter: 2011Q1

REPORT INFORMATION
  Report Type: 
  Country: None (occurrence: None)
  Receive Date: 20110310
  Receipt Date: 20110302
  Transmission Date: 20110831
  Serious: Yes (Other)
  Sender: FDA-Public Use
  Company Number: GB-US-EMD SERONO, INC.-7008192

PATIENT
  Sex: Female
  Weight: 74 kg

DRUGS (6)
  1. REBIF [Suspect]
     Indication: RELAPSING-REMITTING MULTIPLE SCLEROSIS
     Dates: start: 20100301
  2. LANSOPRAZOLE [Concomitant]
     Indication: DYSPEPSIA
     Route: 048
     Dates: start: 20090528
  3. COLPERMIN [Concomitant]
     Indication: IRRITABLE BOWEL SYNDROME
     Dates: start: 20090209
  4. BUTRANS [Concomitant]
     Indication: PAIN
     Route: 061
     Dates: start: 20100517
  5. BACLOFEN [Concomitant]
     Indication: MUSCLE SPASMS
     Route: 048
     Dates: start: 20080114
  6. AMITRIPTYLINE [Concomitant]
     Indication: NEURALGIA
     Route: 048
     Dates: start: 20070731

REACTIONS (4)
  - ARTHRALGIA [None]
  - TYPE 2 DIABETES MELLITUS [None]
  - BLOOD TEST ABNORMAL [None]
  - HEPATIC ENZYME INCREASED [None]
